FAERS Safety Report 23889975 (Version 2)
Quarter: 2024Q3

REPORT INFORMATION
  Report Type: Spontaneous
  Country: NZ (occurrence: NZ)
  Receive Date: 20240523
  Receipt Date: 20240703
  Transmission Date: 20241016
  Serious: Yes (Death)
  Sender: ROCHE
  Company Number: NZ-ROCHE-3568456

PATIENT
  Age: 28 Year
  Sex: Female

DRUGS (5)
  1. ENTRECTINIB [Suspect]
     Active Substance: ENTRECTINIB
     Indication: Non-small cell lung cancer metastatic
     Dosage: NO
     Route: 065
     Dates: start: 20240419
  2. MORPHINE [Concomitant]
     Active Substance: MORPHINE
     Indication: Dyspnoea
     Dates: start: 2023
  3. MORPHINE [Concomitant]
     Active Substance: MORPHINE
     Indication: Pain
     Dosage: 5MG/ML LIQUID: 0.5-1ML
     Route: 048
     Dates: start: 2023
  4. ACETAMINOPHEN [Concomitant]
     Active Substance: ACETAMINOPHEN
     Indication: Pain
     Route: 048
  5. CYCLIZINE [Concomitant]
     Active Substance: CYCLIZINE
     Indication: Nausea
     Route: 048

REACTIONS (3)
  - Malignant neoplasm progression [Fatal]
  - Dyspnoea [Fatal]
  - Off label use [Unknown]

NARRATIVE: CASE EVENT DATE: 20240424
